FAERS Safety Report 8933301 (Version 3)
Quarter: 2013Q1

REPORT INFORMATION
  Report Type: Spontaneous
  Country: FI (occurrence: FI)
  Receive Date: 20121129
  Receipt Date: 20130201
  Transmission Date: 20140127
  Serious: Yes (Other)
  Sender: FDA-Public Use
  Company Number: FI-AMGEN-FINSP2012075582

PATIENT
  Age: 69 Year
  Sex: Female
  Weight: 48 kg

DRUGS (18)
  1. PROLIA [Suspect]
     Indication: PRODUCT USED FOR UNKNOWN INDICATION
     Dosage: 60 MG/ML, Q6MO
     Route: 058
     Dates: start: 20110923, end: 20111114
  2. MIMPARA [Suspect]
     Indication: HYPERPARATHYROIDISM
     Dosage: 30 MG, 1PER EVERY 2 DAYS
     Dates: start: 2009, end: 2012
  3. CLEXANE [Concomitant]
     Indication: ANTICOAGULANT THERAPY
     Dosage: 40 MG, QWK
     Dates: start: 20091216
  4. DISPERIN                           /00002701/ [Concomitant]
     Indication: ANTICOAGULANT THERAPY
     Dosage: 100 MG, QD
     Route: 048
     Dates: start: 20110708
  5. VENOFER [Concomitant]
     Dosage: 100 MG, QWK
     Route: 042
     Dates: start: 20090225
  6. ARANESP [Concomitant]
     Dosage: 80 MUG, QWK
  7. DIGOXIN [Concomitant]
     Indication: CARDIAC DISORDER
     Dosage: 0.062 MG, QD
     Dates: start: 20110704, end: 20121023
  8. MIACALCIC [Concomitant]
     Indication: OSTEOPOROSIS
     Dosage: 200 IU, UNK
     Dates: start: 20110706
  9. RENVELA [Concomitant]
     Indication: BLOOD PHOSPHORUS ABNORMAL
     Dosage: 800 MG, TID
     Dates: start: 20100223
  10. OLICLINOMEL N7 1000E [Concomitant]
     Indication: MEDICAL DIET
     Dosage: 750 ML, Q3WK
     Dates: start: 20110708, end: 20110815
  11. MELATONIN [Concomitant]
     Indication: SLEEP DISORDER
     Dosage: 1 MG, QD
     Dates: start: 20110715
  12. PRIMPERAN [Concomitant]
     Dosage: 10 MG, 1X3
  13. MOVICOL                            /01625101/ [Concomitant]
     Dosage: UNK UNK, AS NECESSARY
  14. HUMALOG [Concomitant]
     Dosage: 100 U/ML, AS NECESSARY
  15. PANACOD [Concomitant]
     Dosage: UNK UNK, AS NECESSARY
  16. TEMGESIC [Concomitant]
     Dosage: 0.2 MG, AS NECESSARY
  17. PAMOL [Concomitant]
     Dosage: 500 MG, AS NECESSARY
  18. TENOX                              /00393701/ [Concomitant]
     Dosage: 20 MG, AS NECESSARY AT NIGHT

REACTIONS (3)
  - Hypocalcaemia [Recovered/Resolved]
  - Hyperparathyroidism [Recovered/Resolved]
  - Blood phosphorus decreased [Recovered/Resolved]
